FAERS Safety Report 21600756 (Version 2)
Quarter: 2022Q4

REPORT INFORMATION
  Report Type: Spontaneous
  Country: EG (occurrence: EG)
  Receive Date: 20221116
  Receipt Date: 20221128
  Transmission Date: 20230112
  Serious: Yes (Disabling, Other)
  Sender: FDA-Public Use
  Company Number: EG-NOVOPROD-979132

PATIENT
  Age: 675 Month
  Sex: Female
  Weight: 100 kg

DRUGS (5)
  1. INSULIN HUMAN [Suspect]
     Active Substance: INSULIN HUMAN
     Dosage: 60 IU, QD(45 IU/MORN. AND 15 IU/NIGHT)
     Route: 058
  2. INSULIN HUMAN [Suspect]
     Active Substance: INSULIN HUMAN
     Indication: Diabetes mellitus
     Dosage: UNK
     Route: 058
  3. RABEPRAKYRL [Concomitant]
     Indication: Prophylaxis
     Dosage: ONE TABLET PER DAY(STARTED AFTER THE FIRST OPERATION AT 2017)
  4. PLETAL [Concomitant]
     Active Substance: CILOSTAZOL
     Indication: Anticoagulant therapy
     Dosage: 50 MG  (2 TABLETS PER DAY)
  5. CEREBROMAP [Concomitant]
     Indication: Anticoagulant therapy
     Dosage: 3 TABLETS PER DAY

REACTIONS (2)
  - Diabetic foot [Not Recovered/Not Resolved]
  - Hyperglycaemia [Unknown]

NARRATIVE: CASE EVENT DATE: 20170101
